FAERS Safety Report 14200268 (Version 2)
Quarter: 2017Q4

REPORT INFORMATION
  Report Type: Spontaneous
  Country: UA (occurrence: UA)
  Receive Date: 20171117
  Receipt Date: 20171212
  Transmission Date: 20180321
  Serious: Yes (Other)
  Sender: FDA-Public Use
  Company Number: UA-009507513-1711UKR005216

PATIENT
  Age: 67 Year
  Sex: Male

DRUGS (47)
  1. DEXAMETHASONE. [Suspect]
     Active Substance: DEXAMETHASONE
     Indication: PREMEDICATION
     Dosage: STRENGTH: 4MG/1ML
     Route: 041
     Dates: start: 20170404, end: 20170404
  2. SODIUM CHLORIDE. [Suspect]
     Active Substance: SODIUM CHLORIDE
     Dosage: 100 ML, UNK
     Route: 041
     Dates: start: 20170809, end: 20170809
  3. DIMEDROL [Concomitant]
     Active Substance: DIPHENHYDRAMINE
     Dosage: 5 ML, UNK
     Route: 041
     Dates: start: 20170830, end: 20170830
  4. ESSENTIALE FORTE (PHOSPHOLIPIDS (UNSPECIFIED)) [Concomitant]
     Dosage: 300 MG, BID
     Dates: start: 20171024, end: 20171028
  5. CALCIUM D3 [Concomitant]
     Active Substance: CALCIUM\CHOLECALCIFEROL
     Dosage: 1 TABLET 3 TIMES A DAY
     Dates: start: 20170712, end: 20170716
  6. CALCIUM D3 [Concomitant]
     Active Substance: CALCIUM\CHOLECALCIFEROL
     Dosage: 1 TABLET 3 TIMES A DAY
     Dates: start: 20170920, end: 20170924
  7. DEXAMETHASONE. [Suspect]
     Active Substance: DEXAMETHASONE
     Dosage: STRENGTH: 4MG/1ML
     Route: 041
     Dates: start: 20170516, end: 20170516
  8. ESSENTIALE FORTE (PHOSPHOLIPIDS (UNSPECIFIED)) [Concomitant]
     Dosage: 300 MG, BID
     Dates: start: 20170425, end: 2017
  9. ESSENTIALE FORTE (PHOSPHOLIPIDS (UNSPECIFIED)) [Concomitant]
     Dosage: 300 MG, BID
     Dates: start: 20170612, end: 20170716
  10. OSETRON [Concomitant]
     Dosage: 8 MG, QD
     Dates: start: 20170712, end: 20170716
  11. TEMODAL [Suspect]
     Active Substance: TEMOZOLOMIDE
     Dosage: 400 MG, QD
     Dates: start: 20171024, end: 20171028
  12. DEXAMETHASONE. [Suspect]
     Active Substance: DEXAMETHASONE
     Dosage: STRENGTH: 4MG/1ML
     Route: 041
     Dates: start: 20170425, end: 20170425
  13. DEXAMETHASONE. [Suspect]
     Active Substance: DEXAMETHASONE
     Dosage: STRENGTH: 4MG/1ML
     Route: 041
     Dates: start: 20170809, end: 20170809
  14. SODIUM CHLORIDE. [Suspect]
     Active Substance: SODIUM CHLORIDE
     Dosage: 100 ML, UNK
     Route: 041
     Dates: start: 20170830, end: 20170830
  15. HEPABENE [Concomitant]
     Dosage: 1 CAPSULE 2-3 TIMES A DAY
     Dates: start: 20170404
  16. AZITHROMYCIN ANHYDROUS. [Concomitant]
     Active Substance: AZITHROMYCIN ANHYDROUS
     Dosage: 500 MG, BID
     Dates: start: 20170516, end: 20170518
  17. CONTROLOC (PANTOPRAZOLE) [Concomitant]
     Dosage: 40 MG, QD (ALL TABLETS TAKEN AFTER MEALS)
     Dates: start: 20170609, end: 20170622
  18. HEPTRAL [Concomitant]
     Active Substance: ADEMETIONINE
     Dosage: 400 MG, BID. LT. IN THE MORNING, 1 T. BEFORE 14:00(TAKEN AFTER MEALS)
     Dates: start: 20170606, end: 20170706
  19. OSETRON [Concomitant]
     Dosage: 8 MG, QD
     Route: 030
     Dates: start: 20170920, end: 20170924
  20. SODIUM CHLORIDE. [Suspect]
     Active Substance: SODIUM CHLORIDE
     Dosage: 100 ML, UNK
     Route: 041
     Dates: start: 20170425, end: 20170425
  21. DIMEDROL [Concomitant]
     Active Substance: DIPHENHYDRAMINE
     Indication: PREMEDICATION
     Dosage: 5 ML, UNK
     Route: 041
     Dates: start: 20170404, end: 20170404
  22. DIMEDROL [Concomitant]
     Active Substance: DIPHENHYDRAMINE
     Dosage: 5 ML, UNK
     Route: 041
     Dates: start: 20170425, end: 20170425
  23. DIMEDROL [Concomitant]
     Active Substance: DIPHENHYDRAMINE
     Dosage: 5 ML, UNK
     Route: 041
     Dates: start: 20170809, end: 20170809
  24. ESSENTIALE FORTE (PHOSPHOLIPIDS (UNSPECIFIED)) [Concomitant]
     Dosage: 300 MG, BID
     Dates: start: 20170516, end: 2017
  25. OFLOXIN (OFLOXACIN) [Concomitant]
     Dosage: 400 MG, QD
     Dates: start: 2017, end: 2017
  26. PROLIA [Concomitant]
     Active Substance: DENOSUMAB
     Dosage: UNK
     Dates: start: 20171004
  27. CALCIUM D3 [Concomitant]
     Active Substance: CALCIUM\CHOLECALCIFEROL
     Dosage: 1 TABLET 3 TIMES A DAY
     Dates: start: 20171001, end: 201710
  28. KEYTRUDA [Suspect]
     Active Substance: PEMBROLIZUMAB
     Indication: MALIGNANT MELANOMA
     Dosage: 180 MG, UNK
     Dates: start: 20170404, end: 20170404
  29. KEYTRUDA [Suspect]
     Active Substance: PEMBROLIZUMAB
     Dosage: 200 MG, UNK
     Dates: start: 20170425, end: 20170830
  30. TEMODAL [Suspect]
     Active Substance: TEMOZOLOMIDE
     Dosage: 400 MG, QD
     Route: 048
     Dates: start: 20170920, end: 20170924
  31. DEXAMETHASONE. [Suspect]
     Active Substance: DEXAMETHASONE
     Dosage: STRENGTH: 4MG/1ML
     Route: 041
     Dates: start: 20170830, end: 20170830
  32. SODIUM CHLORIDE. [Suspect]
     Active Substance: SODIUM CHLORIDE
     Dosage: 100 ML, UNK
     Route: 041
     Dates: start: 20170516, end: 20170516
  33. ZELBORAF [Concomitant]
     Active Substance: VEMURAFENIB
     Indication: MALIGNANT MELANOMA
     Dosage: 960 MG, BID. (TABLETS TAKEN 1 HOUR BEFORE MEALS)
     Dates: start: 20170606, end: 20170706
  34. ESSENTIALE FORTE (PHOSPHOLIPIDS (UNSPECIFIED)) [Concomitant]
     Dosage: 300 MG, BID
     Dates: start: 20170808, end: 20170822
  35. ESSENTIALE FORTE (PHOSPHOLIPIDS (UNSPECIFIED)) [Concomitant]
     Indication: PREMEDICATION
     Dosage: 300 MG, BID
     Dates: start: 20170404, end: 2017
  36. TEMODAL [Suspect]
     Active Substance: TEMOZOLOMIDE
     Dosage: 400 MG, QD
     Route: 048
     Dates: start: 20170712, end: 20170716
  37. ESSENTIALE FORTE (PHOSPHOLIPIDS (UNSPECIFIED)) [Concomitant]
     Dosage: 300 MG, BID
     Dates: start: 20170829, end: 20170913
  38. CONTROLOC (PANTOPRAZOLE) [Concomitant]
     Dosage: 40 MG, BID
     Dates: start: 20170530, end: 20170608
  39. SODIUM CHLORIDE. [Suspect]
     Active Substance: SODIUM CHLORIDE
     Indication: PREMEDICATION
     Dosage: 100 ML, UNK
     Route: 041
     Dates: start: 20170404, end: 20170404
  40. PANADOL [Concomitant]
     Active Substance: ACETAMINOPHEN
     Indication: PREMEDICATION
     Dosage: 2 TH. STRENGTH: 500(UNITS NOT PROVIDED)
     Dates: start: 20170404, end: 20170404
  41. DIMEDROL [Concomitant]
     Active Substance: DIPHENHYDRAMINE
     Dosage: 5 ML, UNK
     Route: 041
     Dates: start: 20170516, end: 20170516
  42. AZITHROMYCIN ANHYDROUS. [Concomitant]
     Active Substance: AZITHROMYCIN ANHYDROUS
     Dosage: 500 MG, QD
     Dates: start: 2017, end: 2017
  43. AVELOX [Concomitant]
     Active Substance: MOXIFLOXACIN HYDROCHLORIDE
     Dosage: 400 MG, QD
     Dates: start: 2017, end: 2017
  44. PANANGIN [Concomitant]
     Active Substance: MAGNESIUM ASPARTATE\POTASSIUM ASPARTATE
     Dosage: 1 DF, TID
     Dates: start: 20170530, end: 20170702
  45. PROLIA [Concomitant]
     Active Substance: DENOSUMAB
     Dosage: UNK
     Dates: start: 20171001, end: 201710
  46. CALCIUM D3 [Concomitant]
     Active Substance: CALCIUM\CHOLECALCIFEROL
     Dosage: 1 TABLET 3 TIMES A DAY
     Dates: start: 20171024, end: 20171028
  47. OSETRON [Concomitant]
     Dosage: 8 MG, QD
     Dates: start: 20170712, end: 20170716

REACTIONS (4)
  - Osteosclerosis [Unknown]
  - Immunodeficiency [Unknown]
  - Malignant neoplasm progression [Unknown]
  - Pneumonitis [Unknown]

NARRATIVE: CASE EVENT DATE: 2017
